FAERS Safety Report 8439558-4 (Version None)
Quarter: 2012Q2

REPORT INFORMATION
  Report Type: 
  Country: None (occurrence: None)
  Receive Date: 20120615
  Receipt Date: 20120607
  Transmission Date: 20120825
  Serious: Yes (Hospitalization)
  Sender: FDA-Public Use
  Company Number: CA-JNJFOC-20120604065

PATIENT
  Sex: Male
  Weight: 140 kg

DRUGS (9)
  1. METFORMIN HCL [Concomitant]
     Route: 065
  2. HYDROCHLOROTHIAZIDE [Concomitant]
     Route: 065
  3. INSULIN [Concomitant]
     Route: 065
  4. RAMIPRIL [Concomitant]
     Route: 065
  5. BYETTA [Concomitant]
     Route: 065
  6. REMICADE [Suspect]
     Indication: PSORIASIS
     Dosage: HAD 3 INFLIXIMAB INFUSION
     Route: 042
     Dates: start: 20120414
  7. ASPIRIN [Concomitant]
     Route: 065
  8. DILTIAZEM [Concomitant]
     Route: 065
  9. RABEPRAZOLE SODIUM [Concomitant]
     Route: 065

REACTIONS (1)
  - OBESITY SURGERY [None]
